FAERS Safety Report 9227757 (Version 1)
Quarter: 2013Q1

REPORT INFORMATION
  Report Type: Spontaneous
  Country: US (occurrence: None)
  Receive Date: 20121012
  Receipt Date: 20121012
  Transmission Date: 20140127
  Serious: Yes (Hospitalization)
  Sender: FDA-Public Use
  Company Number: 1000025082

PATIENT
  Age: 15 Year
  Sex: Male

DRUGS (3)
  1. LEXAPRO [Suspect]
     Indication: DEPRESSION
     Route: 048
     Dates: start: 201109
  2. FOCALIN XR (DEXMETHYLPHENIDATE HYDROCHLORIDE) (DEXMETHYLPHENIDATE HYDROCHLORIDE) [Concomitant]
  3. KLONOPIN (CLONAZEFAM) (CLONAZEPAM) [Concomitant]

REACTIONS (3)
  - Suicidal ideation [None]
  - Self-injurious ideation [None]
  - Off label use [None]
